FAERS Safety Report 6838737-7 (Version None)
Quarter: 2010Q3

REPORT INFORMATION
  Report Type: 
  Country: None (occurrence: None)
  Receive Date: 20100713
  Receipt Date: 20070620
  Transmission Date: 20110219
  Serious: No
  Sender: FDA-Public Use
  Company Number: US-PFIZER INC-2007038711

PATIENT
  Sex: Female
  Weight: 74.1 kg

DRUGS (12)
  1. CHANTIX [Suspect]
     Indication: SMOKING CESSATION THERAPY
     Dates: start: 20070510, end: 20070511
  2. PROLIXIN [Concomitant]
  3. DOXEPIN HCL [Concomitant]
  4. ARTANE [Concomitant]
  5. RISPERDAL [Concomitant]
  6. LIPITOR [Concomitant]
  7. LISINOPRIL [Concomitant]
  8. ALLEGRA [Concomitant]
  9. IRON [Concomitant]
  10. MULTI-VITAMINS [Concomitant]
  11. FOLIC ACID [Concomitant]
  12. VITAMIN C [Concomitant]

REACTIONS (1)
  - MYALGIA [None]
